FAERS Safety Report 25756344 (Version 1)
Quarter: 2025Q3

REPORT INFORMATION
  Report Type: Spontaneous
  Country: US (occurrence: None)
  Receive Date: 20250902
  Receipt Date: 20250902
  Transmission Date: 20251021
  Serious: Yes (Other)
  Sender: FDA-CTU
  Company Number: None

PATIENT
  Age: 54 Year
  Sex: Female
  Weight: 68.49 kg

DRUGS (6)
  1. MAVENCLAD [Suspect]
     Active Substance: CLADRIBINE
     Indication: Multiple sclerosis
     Dosage: FREQUENCY : DAILY;?
     Route: 048
     Dates: start: 20250901
  2. Baclofen Oral Tablet 10 MG [Concomitant]
  3. Ampyra Oral Tablet Extended Release [Concomitant]
  4. Calcium-Vitamin D3 Oral Tablet 600 [Concomitant]
  5. Levothyroxine Sodium Oral Capsule 1 [Concomitant]
  6. Losartan Potassium Oral Tablet 25 M [Concomitant]

REACTIONS (2)
  - Rhinorrhoea [None]
  - Throat irritation [None]

NARRATIVE: CASE EVENT DATE: 20250902
